FAERS Safety Report 10375384 (Version 1)
Quarter: 2014Q3

REPORT INFORMATION
  Report Type: Spontaneous
  Country: DK (occurrence: None)
  Receive Date: 20140806
  Receipt Date: 20140806
  Transmission Date: 20150326
  Serious: Yes (Hospitalization)
  Sender: FDA-Public Use
  Company Number: 2014AMD00051

PATIENT
  Age: 50 Year
  Sex: Female

DRUGS (3)
  1. EPINEPHRINE (EPINEPHRINE) INTRAVENOUS [Suspect]
     Active Substance: EPINEPHRINE HYDROCHLORIDE
     Indication: ARTHROPOD BITE
     Dosage: 1:10,000, ONCE, INTRAVENOUS
     Route: 042
  2. UNSPECIFIED ANTIHISTAMINE [Concomitant]
     Active Substance: ANTIHISTAMINES NOS
  3. SOLU CORTEF (HYDROCORTISONE) [Concomitant]

REACTIONS (7)
  - Chest pain [None]
  - Acute myocardial infarction [None]
  - Torsade de pointes [None]
  - Electrocardiogram ST segment depression [None]
  - Stress cardiomyopathy [None]
  - Ventricular tachycardia [None]
  - Bundle branch block right [None]
